FAERS Safety Report 17421484 (Version 1)
Quarter: 2020Q1

REPORT INFORMATION
  Report Type: Spontaneous
  Country: FR (occurrence: FR)
  Receive Date: 20200214
  Receipt Date: 20200214
  Transmission Date: 20200409
  Serious: Yes (Life-Threatening)
  Sender: FDA-Public Use
  Company Number: FR-INDIVIOR US-INDV-123561-2020

PATIENT
  Age: 32 Year
  Sex: Male

DRUGS (1)
  1. SUBUTEX [Suspect]
     Active Substance: BUPRENORPHINE HYDROCHLORIDE
     Indication: POISONING DELIBERATE
     Dosage: UNK
     Route: 060
     Dates: start: 20190114, end: 20190114

REACTIONS (3)
  - Miosis [Recovered/Resolved]
  - Poisoning deliberate [Recovered/Resolved]
  - Respiratory arrest [Recovered/Resolved]

NARRATIVE: CASE EVENT DATE: 20190114
